FAERS Safety Report 6574754-2 (Version None)
Quarter: 2010Q1

REPORT INFORMATION
  Report Type: 
  Country: None (occurrence: None)
  Receive Date: 20100209
  Receipt Date: 20100127
  Transmission Date: 20100710
  Serious: Yes (Hospitalization, Other)
  Sender: FDA-Public Use
  Company Number: PHHY2010FR02558

PATIENT
  Age: 52 Year
  Sex: Male

DRUGS (3)
  1. VALSARTAN AND HYDROCHLOROTHIAZIDE [Suspect]
     Indication: HYPERTENSION
     Dosage: 1 TABLET (160 MG/12.5 MG) QD
     Route: 048
     Dates: end: 20090914
  2. KARDEGIC [Concomitant]
     Dosage: 300 MG, UNK
  3. CRESTOR [Concomitant]
     Dosage: 10 MG/DAY

REACTIONS (4)
  - ELECTROCARDIOGRAM QT PROLONGED [None]
  - HYPERALDOSTERONISM [None]
  - HYPOKALAEMIA [None]
  - QUADRIPARESIS [None]
